FAERS Safety Report 11591311 (Version 1)
Quarter: 2015Q4

REPORT INFORMATION
  Report Type: Spontaneous
  Country: US (occurrence: US)
  Receive Date: 20151004
  Receipt Date: 20151004
  Transmission Date: 20160304
  Serious: No
  Sender: FDA-Public Use
  Company Number: US-009507513-1509USA012061

PATIENT
  Age: 70 Year
  Sex: Female

DRUGS (1)
  1. ASMANEX [Suspect]
     Active Substance: MOMETASONE FUROATE
     Indication: ASTHMA
     Dosage: 220 MICROGRAM, ONCE DAILY
     Route: 055

REACTIONS (6)
  - Drug ineffective [Recovered/Resolved]
  - Abdominal discomfort [Unknown]
  - Drug dose omission [Unknown]
  - Abdominal distension [Unknown]
  - Product quality issue [Unknown]
  - Chest discomfort [Recovered/Resolved]

NARRATIVE: CASE EVENT DATE: 20150921
